FAERS Safety Report 24147404 (Version 1)
Quarter: 2024Q3

REPORT INFORMATION
  Report Type: Report from Study
  Country: US (occurrence: US)
  Receive Date: 20240729
  Receipt Date: 20240729
  Transmission Date: 20241016
  Serious: Yes (Other)
  Sender: OTSUKA
  Company Number: US-OTSUKA-2024_003304

PATIENT
  Sex: Female

DRUGS (2)
  1. TOLVAPTAN [Suspect]
     Active Substance: TOLVAPTAN
     Indication: Congenital cystic kidney disease
     Dosage: UNK
     Route: 065
     Dates: start: 20210405
  2. TOLVAPTAN [Suspect]
     Active Substance: TOLVAPTAN
     Indication: Congenital cystic kidney disease

REACTIONS (2)
  - Sleeve gastrectomy [Unknown]
  - Gastrointestinal surgery [Unknown]

NARRATIVE: CASE EVENT DATE: 20240130
